FAERS Safety Report 8206973-3 (Version None)
Quarter: 2012Q1

REPORT INFORMATION
  Report Type: 
  Country: None (occurrence: None)
  Receive Date: 20120314
  Receipt Date: 20120302
  Transmission Date: 20120608
  Serious: Yes (Hospitalization)
  Sender: FDA-Public Use
  Company Number: DE-ELI_LILLY_AND_COMPANY-DE201203000441

PATIENT
  Age: 71 Year
  Sex: Female

DRUGS (5)
  1. ANTIHYPERTENSIVES [Concomitant]
  2. MORPHINE [Concomitant]
  3. METOCLOPRAMIDE [Concomitant]
  4. JODETTEN [Concomitant]
  5. FORTEO [Suspect]
     Indication: OSTEOPOROSIS
     Dosage: UNK, QD
     Route: 058
     Dates: start: 20120124

REACTIONS (6)
  - HYPOAESTHESIA [None]
  - EPIGASTRIC DISCOMFORT [None]
  - HEADACHE [None]
  - NAUSEA [None]
  - DIZZINESS [None]
  - IRON DEFICIENCY [None]
